FAERS Safety Report 12521041 (Version 2)
Quarter: 2016Q3

REPORT INFORMATION
  Report Type: Spontaneous
  Country: JP (occurrence: JP)
  Receive Date: 20160701
  Receipt Date: 20160706
  Transmission Date: 20161109
  Serious: Yes (Other)
  Sender: FDA-Public Use
  Company Number: JP-SHIONOGI, INC-2016000659

PATIENT
  Age: 80 Year
  Sex: Male

DRUGS (1)
  1. FINIBAX [Suspect]
     Active Substance: DORIPENEM MONOHYDRATE
     Indication: LIVER ABSCESS
     Dosage: 1 G, QD
     Route: 041
     Dates: start: 20160620, end: 20160624

REACTIONS (2)
  - White blood cell count increased [Recovered/Resolved]
  - Eosinophil count increased [Recovered/Resolved]

NARRATIVE: CASE EVENT DATE: 20160623
